FAERS Safety Report 16655977 (Version 2)
Quarter: 2019Q3

REPORT INFORMATION
  Report Type: Spontaneous
  Country: US (occurrence: US)
  Receive Date: 20190801
  Receipt Date: 20190917
  Transmission Date: 20191004
  Serious: Yes (Disabling, Other)
  Sender: FDA-Public Use
  Company Number: US-JNJFOC-20190733187

PATIENT
  Age: 35 Year
  Sex: Female

DRUGS (14)
  1. HYDROCORTISONE. [Concomitant]
     Active Substance: HYDROCORTISONE
     Indication: CROHN^S DISEASE
  2. MIRALAX [Concomitant]
     Active Substance: POLYETHYLENE GLYCOL 3350
     Indication: CROHN^S DISEASE
     Dates: start: 2016
  3. METHYLPREDNISOLONE. [Concomitant]
     Active Substance: METHYLPREDNISOLONE
     Indication: INFLAMMATORY BOWEL DISEASE
  4. IRON [Concomitant]
     Active Substance: IRON
     Indication: CROHN^S DISEASE
     Dosage: ON AND OFF SINCE 2016
     Dates: start: 2016
  5. ESOMEPRAZOLE. [Concomitant]
     Active Substance: ESOMEPRAZOLE MAGNESIUM
     Indication: GASTROOESOPHAGEAL REFLUX DISEASE
     Dates: start: 2016
  6. STELARA [Suspect]
     Active Substance: USTEKINUMAB
     Indication: CROHN^S DISEASE
     Route: 058
     Dates: start: 20180129
  7. STELARA [Suspect]
     Active Substance: USTEKINUMAB
     Route: 058
  8. METHYLPREDNISOLONE. [Concomitant]
     Active Substance: METHYLPREDNISOLONE
     Indication: DERMATOMYOSITIS
     Dosage: VARIOUS DOSES UP TO 8MG/DAY
     Dates: start: 201909
  9. METHYLPREDNISOLONE. [Concomitant]
     Active Substance: METHYLPREDNISOLONE
     Indication: ARTHRALGIA
  10. INSULIN                            /00646001/ [Concomitant]
     Active Substance: INSULIN NOS
     Indication: CROHN^S DISEASE
     Dates: start: 2010
  11. HYDROCORTISONE. [Concomitant]
     Active Substance: HYDROCORTISONE
     Indication: HAEMORRHOIDS
     Dosage: OCCASIONALLY FOR 1 YEAR
  12. MECOBALAMIN [Concomitant]
     Active Substance: METHYLCOBALAMIN
     Indication: CROHN^S DISEASE
     Dates: start: 2016
  13. RIFAXIMIN. [Concomitant]
     Active Substance: RIFAXIMIN
     Indication: CROHN^S DISEASE
     Dates: start: 201809
  14. RIFAXIMIN. [Concomitant]
     Active Substance: RIFAXIMIN
     Indication: DYSBIOSIS

REACTIONS (4)
  - Status migrainosus [Not Recovered/Not Resolved]
  - Product use issue [Unknown]
  - Pneumonia [Not Recovered/Not Resolved]
  - Off label use [Unknown]

NARRATIVE: CASE EVENT DATE: 20190520
